FAERS Safety Report 8896565 (Version 1)
Quarter: 2012Q4

REPORT INFORMATION
  Report Type: Spontaneous
  Country: US (occurrence: None)
  Receive Date: 20121107
  Receipt Date: 20121107
  Transmission Date: 20130627
  Serious: Yes (Hospitalization)
  Sender: FDA-Public Use
  Company Number: None

PATIENT
  Sex: Male
  Weight: 70.2 kg

DRUGS (7)
  1. CYCLOPHOSPHAMIDE [Suspect]
  2. DOXORUBICIN HYDROCHLORIDE [Suspect]
  3. ETOPOSIDE [Suspect]
  4. IFOSFAMIDE [Suspect]
  5. TOPOTECAN [Suspect]
  6. VINCRISTINE SULFATE [Suspect]
  7. MESNA [Concomitant]

REACTIONS (5)
  - Bladder injury [None]
  - Bladder perforation [None]
  - Iatrogenic injury [None]
  - Procedural haemorrhage [None]
  - Urine output decreased [None]
